FAERS Safety Report 4633727-7 (Version None)
Quarter: 2005Q2

REPORT INFORMATION
  Report Type: 
  Country: None (occurrence: None)
  Receive Date: 20050413
  Receipt Date: 20050401
  Transmission Date: 20051028
  Serious: Yes (Other)
  Sender: FDA-Public Use
  Company Number: US-JNJFOC-20050400947

PATIENT
  Sex: Female
  Weight: 68.04 kg

DRUGS (4)
  1. REMICADE [Suspect]
     Indication: RHEUMATOID ARTHRITIS
     Route: 042
  2. DARVOCET [Concomitant]
  3. DARVOCET [Concomitant]
     Indication: PAIN
  4. TYLENOL (CAPLET) [Concomitant]
     Indication: PAIN

REACTIONS (2)
  - LUNG NEOPLASM [None]
  - TOTAL LUNG CAPACITY DECREASED [None]
